FAERS Safety Report 6557625-7 (Version None)
Quarter: 2010Q1

REPORT INFORMATION
  Report Type: 
  Country: None (occurrence: None)
  Receive Date: 20100128
  Receipt Date: 20100128
  Transmission Date: 20100710
  Serious: Yes (Life-Threatening, Hospitalization)
  Sender: FDA-Public Use
  Company Number: None

PATIENT
  Sex: Female
  Weight: 78.3 kg

DRUGS (1)
  1. YAZ [Suspect]
     Indication: CONTRACEPTION
     Dosage: 1 TABLET DAILY BY MOUTH
     Route: 048
     Dates: start: 20081222, end: 20091017

REACTIONS (7)
  - CARDIAC ARREST [None]
  - DYSPNOEA [None]
  - METABOLIC ACIDOSIS [None]
  - NAUSEA [None]
  - PULMONARY EMBOLISM [None]
  - SYNCOPE [None]
  - VOMITING [None]
